FAERS Safety Report 7555206-X (Version None)
Quarter: 2011Q2

REPORT INFORMATION
  Report Type: 
  Country: None (occurrence: None)
  Receive Date: 20110617
  Receipt Date: 20110606
  Transmission Date: 20111010
  Serious: Yes (Hospitalization, Other)
  Sender: FDA-Public Use
  Company Number: PHFR2010GB05561

PATIENT
  Sex: Female

DRUGS (10)
  1. METFORMIN HCL [Concomitant]
     Dosage: 1700 MG, UNK
  2. RANITIDINE [Concomitant]
     Dosage: 150 MG, UNK
  3. SIMVASTATIN [Concomitant]
     Dosage: 40 MG, UNK
  4. ACETYL SALICYLIC ACID COMPOUND TAB [Concomitant]
     Dosage: 75 MG, UNK
  5. DIPYRIDAMOLE [Concomitant]
     Dosage: 400 MG, UNK
  6. CLOZAPINE [Suspect]
     Indication: SCHIZOPHRENIA
     Dosage: UNK
     Route: 048
     Dates: start: 20010426
  7. CLOZAPINE [Suspect]
     Dosage: 250 MG, BID
     Route: 048
  8. TROSPIUM CHLORIDE [Concomitant]
     Dosage: 20 MG, BID
  9. PAROXETINE HCL [Concomitant]
     Dosage: 30 MG, UNK
  10. HYOSCINE [Concomitant]
     Dosage: 30 UG, TID
     Route: 048

REACTIONS (4)
  - LOWER LIMB FRACTURE [None]
  - ASTHENIA [None]
  - FALL [None]
  - ANKLE FRACTURE [None]
